FAERS Safety Report 10620920 (Version 1)
Quarter: 2014Q4

REPORT INFORMATION
  Report Type: Spontaneous
  Country: IN (occurrence: IN)
  Receive Date: 20141202
  Receipt Date: 20141202
  Transmission Date: 20150529
  Serious: Yes (Hospitalization, Congenital Anomaly)
  Sender: FDA-Public Use
  Company Number: PHHY2014IN156555

PATIENT
  Sex: Male
  Weight: 3.8 kg

DRUGS (1)
  1. VALPROATE SODIUM. [Suspect]
     Active Substance: VALPROATE SODIUM
     Indication: PRODUCT USED FOR UNKNOWN INDICATION
     Dosage: MATERNAL DOSE: 800 MG/DAY
     Route: 064

REACTIONS (19)
  - Pyrexia [Unknown]
  - Crepitations [Unknown]
  - Hepatomegaly [Unknown]
  - Foetal exposure during pregnancy [Unknown]
  - Atrial septal defect [Unknown]
  - Respiratory rate increased [Unknown]
  - Failure to thrive [Unknown]
  - Cardiac murmur [Unknown]
  - Ventricular septal defect [Unknown]
  - Hypospadias [Unknown]
  - Dysmorphism [Unknown]
  - Heart rate increased [Unknown]
  - Macrocephaly [Unknown]
  - Cardiac failure congestive [Unknown]
  - Pulmonary hypertension [Unknown]
  - Foetal anticonvulsant syndrome [Unknown]
  - Dyspnoea [Unknown]
  - Use of accessory respiratory muscles [Unknown]
  - Patent ductus arteriosus [Unknown]
